FAERS Safety Report 6993506-2 (Version None)
Quarter: 2010Q3

REPORT INFORMATION
  Report Type: 
  Country: None (occurrence: None)
  Receive Date: 20100917
  Receipt Date: 20100713
  Transmission Date: 20110219
  Serious: No
  Sender: FDA-Public Use
  Company Number: US-ASTRAZENECA-2010SE32598

PATIENT
  Age: 85 Year
  Sex: Female

DRUGS (6)
  1. SEROQUEL XR [Suspect]
     Indication: SCHIZOPHRENIA
     Route: 048
     Dates: start: 20090101, end: 20100601
  2. RISPERIDONE [Concomitant]
  3. RISPERIDONE [Concomitant]
  4. ATENOLOL [Concomitant]
     Indication: HYPERTENSION
  5. ZOLPIDEM TARTRATE [Concomitant]
  6. CITALOPRAM HYDROBROMIDE [Concomitant]

REACTIONS (7)
  - DELUSION [None]
  - DRUG DOSE OMISSION [None]
  - FALL [None]
  - HEAD INJURY [None]
  - PAIN [None]
  - POOR QUALITY SLEEP [None]
  - SEDATION [None]
